FAERS Safety Report 18275004 (Version 2)
Quarter: 2020Q4

REPORT INFORMATION
  Report Type: Spontaneous
  Country: BR (occurrence: BR)
  Receive Date: 20200917
  Receipt Date: 20201014
  Transmission Date: 20210113
  Serious: Yes (Death, Other)
  Sender: FDA-Public Use
  Company Number: BR-AMGEN-BRASP2020149063

PATIENT
  Age: 79 Year
  Sex: Female

DRUGS (1)
  1. ENBREL [Suspect]
     Active Substance: ETANERCEPT
     Indication: PRODUCT USED FOR UNKNOWN INDICATION
     Dosage: UNK
     Route: 065
     Dates: end: 201912

REACTIONS (5)
  - Metastases to lung [Unknown]
  - Pulmonary oedema [Unknown]
  - Death [Fatal]
  - Uterine cancer [Unknown]
  - COVID-19 [Unknown]

NARRATIVE: CASE EVENT DATE: 20200401
